FAERS Safety Report 8083303-1 (Version None)
Quarter: 2012Q1

REPORT INFORMATION
  Report Type: 
  Country: None (occurrence: None)
  Receive Date: 20120127
  Receipt Date: 20110204
  Transmission Date: 20120608
  Serious: No
  Sender: FDA-Public Use
  Company Number: US-ABBOTT-11P-163-0702625-00

PATIENT
  Age: 46 Year
  Sex: Female

DRUGS (7)
  1. OMGEA 3 [Concomitant]
     Indication: PRODUCT USED FOR UNKNOWN INDICATION
     Dosage: 1000M DAILY
  2. ASCORBIC ACID [Concomitant]
     Indication: VITAMIN SUPPLEMENTATION
     Dosage: 500MG DAILY
  3. ATENOLOL [Concomitant]
     Indication: HEART RATE IRREGULAR
     Dosage: 1.5 TABS DAILY = 37.5MG DAILY
  4. ATACAND [Concomitant]
     Indication: HYPERTENSION
     Dosage: 8MG DAILY
  5. HUMIRA [Suspect]
     Indication: RHEUMATOID ARTHRITIS
     Dates: start: 20100514
  6. SYNTHROID [Concomitant]
     Indication: HYPOTHYROIDISM
     Dosage: 88MCG DAILY
  7. CALCIUM [Concomitant]
     Indication: PRODUCT USED FOR UNKNOWN INDICATION
     Dosage: 1000MG DAILY

REACTIONS (2)
  - OROPHARYNGEAL PAIN [None]
  - NASOPHARYNGITIS [None]
